FAERS Safety Report 18968751 (Version 1)
Quarter: 2021Q1

REPORT INFORMATION
  Report Type: Spontaneous
  Country: US (occurrence: US)
  Receive Date: 20210304
  Receipt Date: 20210304
  Transmission Date: 20210420
  Serious: Yes (Other)
  Sender: FDA-Public Use
  Company Number: US-SUN PHARMACEUTICAL INDUSTRIES LTD-2021R1-284107

PATIENT
  Age: 30 Year
  Sex: Male

DRUGS (4)
  1. TESTOSTERONE. [Suspect]
     Active Substance: TESTOSTERONE
     Dosage: 50 MILLIGRAM, WEEKLY
     Route: 030
  2. TESTOSTERONE. [Suspect]
     Active Substance: TESTOSTERONE
     Dosage: UNK, WEEKLY (MAINTAINED ON T 50 TO 60MG/WEEK)
     Route: 030
  3. TESTOSTERONE. [Suspect]
     Active Substance: TESTOSTERONE
     Dosage: 140 MILLIGRAM, WEEKLY
     Route: 030
  4. TESTOSTERONE. [Suspect]
     Active Substance: TESTOSTERONE
     Indication: VIRILISM
     Dosage: 100 MILLIGRAM, WEEKLY
     Route: 030

REACTIONS (1)
  - Hidradenitis [Recovering/Resolving]
